FAERS Safety Report 6956581-7 (Version None)
Quarter: 2010Q3

REPORT INFORMATION
  Report Type: 
  Country: None (occurrence: None)
  Receive Date: 20100830
  Receipt Date: 20100819
  Transmission Date: 20110219
  Serious: Yes (Other)
  Sender: FDA-Public Use
  Company Number: US-ASTRAZENECA-2010SE39057

PATIENT
  Sex: Male
  Weight: 149.7 kg

DRUGS (9)
  1. SYMBICORT [Suspect]
     Dosage: 160/4.5, 2 PUFFS BID
     Route: 055
  2. PULMICORT RESPULES [Suspect]
     Route: 055
  3. NEURONTIN [Concomitant]
  4. BROVANA [Concomitant]
  5. HYDROCODONE [Concomitant]
  6. FLEXERIL [Concomitant]
  7. VITAMINS [Concomitant]
  8. COMBIVENT [Concomitant]
  9. IBUPROFEN [Concomitant]

REACTIONS (3)
  - DRUG INEFFECTIVE [None]
  - LUNG DISORDER [None]
  - VISUAL IMPAIRMENT [None]
